FAERS Safety Report 8801326 (Version 3)
Quarter: 2012Q4

REPORT INFORMATION
  Report Type: Report from Study
  Country: US (occurrence: US)
  Receive Date: 20120920
  Receipt Date: 20121217
  Transmission Date: 20130627
  Serious: Yes (Hospitalization)
  Sender: FDA-Public Use
  Company Number: US-NOVOPROD-358907

PATIENT
  Age: 66 Year
  Sex: Female
  Weight: 92.52 kg

DRUGS (2)
  1. LIRAGLUTIDE FLEXPEN [Suspect]
     Indication: TYPE 2 DIABETES MELLITUS
     Dosage: 1.8 mg, qd
     Route: 058
     Dates: start: 20110310, end: 20120628
  2. LIRAGLUTIDE FLEXPEN [Suspect]
     Dosage: 1.8 mg, qd
     Route: 058
     Dates: start: 20120629

REACTIONS (2)
  - Angina unstable [Recovered/Resolved]
  - Coronary revascularisation [Recovered/Resolved]
